FAERS Safety Report 17762234 (Version 3)
Quarter: 2020Q3

REPORT INFORMATION
  Report Type: Spontaneous
  Country: GB (occurrence: GB)
  Receive Date: 20200508
  Receipt Date: 20200713
  Transmission Date: 20201102
  Serious: Yes (Other)
  Sender: FDA-Public Use
  Company Number: GB-NOVOPROD-726933

PATIENT
  Age: 81 Year
  Sex: Female
  Weight: 63.5 kg

DRUGS (12)
  1. ALFACALCIDOL [Concomitant]
     Active Substance: ALFACALCIDOL
     Dosage: 250 NG, QD
     Route: 065
  2. LANSOPRAZOLE. [Concomitant]
     Active Substance: LANSOPRAZOLE
     Dosage: 30 MG, QD
     Route: 065
  3. ROSUVASTATIN. [Concomitant]
     Active Substance: ROSUVASTATIN
     Dosage: 10 MG, QD
     Route: 065
  4. BISOPROLOL [Concomitant]
     Active Substance: BISOPROLOL
     Dosage: 5 MG, QD
     Route: 065
  5. GAVISCON ADVANCED [Concomitant]
     Dosage: 10 ML, QD
     Route: 065
  6. NOVORAPID [Suspect]
     Active Substance: INSULIN ASPART
     Indication: TYPE 1 DIABETES MELLITUS
     Dosage: UNK, BEFORE MEALS
     Route: 065
     Dates: start: 2005
  7. PANTOPRAZOLE [Concomitant]
     Active Substance: PANTOPRAZOLE
     Indication: PRODUCT USED FOR UNKNOWN INDICATION
     Dosage: 20 MG, QD
     Route: 065
  8. QUININE SULPHATE [Concomitant]
     Active Substance: QUININE SULFATE
     Indication: MUSCLE SPASMS
     Dosage: 200 MG, QD
     Route: 065
  9. FUROSEMIDE. [Concomitant]
     Active Substance: FUROSEMIDE
     Dosage: 40 MG, BID
     Route: 065
  10. LEVEMIR [Suspect]
     Active Substance: INSULIN DETEMIR
     Indication: TYPE 1 DIABETES MELLITUS
     Dosage: UNK, 6PM
     Route: 065
     Dates: start: 2005
  11. PARACETAMOL [Concomitant]
     Active Substance: ACETAMINOPHEN
     Dosage: 500 MG, QD
     Route: 065
  12. CLOPIDOGREL [Concomitant]
     Active Substance: CLOPIDOGREL BISULFATE
     Dosage: 75 MG, QD
     Route: 065

REACTIONS (6)
  - Diabetic neuropathy [Unknown]
  - Chronic lymphocytic leukaemia [Not Recovered/Not Resolved]
  - Chronic kidney disease [Not Recovered/Not Resolved]
  - Diabetic retinopathy [Not Recovered/Not Resolved]
  - End stage renal disease [Not Recovered/Not Resolved]
  - Squamous cell carcinoma of skin [Not Recovered/Not Resolved]

NARRATIVE: CASE EVENT DATE: 20100316
